FAERS Safety Report 22262096 (Version 1)
Quarter: 2023Q2

REPORT INFORMATION
  Report Type: Spontaneous
  Country: US (occurrence: US)
  Receive Date: 20230428
  Receipt Date: 20230428
  Transmission Date: 20230721
  Serious: No
  Sender: FDA-Public Use
  Company Number: US-OYSTER POINT PHARMA, INC-US-OYS-23-000112

PATIENT
  Sex: Female

DRUGS (1)
  1. TYRVAYA [Suspect]
     Active Substance: VARENICLINE TARTRATE
     Indication: Dry eye
     Dosage: 1 DOSAGE FORM, TID
     Route: 045
     Dates: start: 20220503

REACTIONS (7)
  - Depressed mood [Not Recovered/Not Resolved]
  - Emotional distress [Not Recovered/Not Resolved]
  - Product delivery mechanism issue [Unknown]
  - Intentional product use issue [Unknown]
  - Product design issue [Unknown]
  - Intentional product misuse [Unknown]
  - Inability to afford medication [Unknown]
